FAERS Safety Report 12246184 (Version 3)
Quarter: 2016Q2

REPORT INFORMATION
  Report Type: Spontaneous
  Country: US (occurrence: US)
  Receive Date: 20160407
  Receipt Date: 20160503
  Transmission Date: 20160815
  Serious: Yes (Hospitalization)
  Sender: FDA-Public Use
  Company Number: US-TAKEDA-2016TUS005744

PATIENT
  Age: 87 Year
  Sex: Male
  Weight: 87.98 kg

DRUGS (1)
  1. ENTYVIO [Suspect]
     Active Substance: VEDOLIZUMAB
     Indication: COLITIS ULCERATIVE
     Dosage: 300 MG, UNK
     Route: 042
     Dates: start: 20160324

REACTIONS (12)
  - Confusional state [Recovered/Resolved]
  - Myalgia [Unknown]
  - Fatigue [Unknown]
  - Erythema [Unknown]
  - Arthralgia [Unknown]
  - Dehydration [Unknown]
  - Pyrexia [Not Recovered/Not Resolved]
  - Peripheral swelling [Unknown]
  - Decreased appetite [Unknown]
  - Cough [Unknown]
  - Pain in extremity [Unknown]
  - Oropharyngeal pain [Unknown]

NARRATIVE: CASE EVENT DATE: 20160324
